FAERS Safety Report 7974417-2 (Version None)
Quarter: 2011Q4

REPORT INFORMATION
  Report Type: 
  Country: None (occurrence: None)
  Receive Date: 20111213
  Receipt Date: 20111129
  Transmission Date: 20120403
  Serious: Yes (Life-Threatening, Hospitalization)
  Sender: FDA-Public Use
  Company Number: NL-CELGENEUS-114-21880-11113892

PATIENT
  Sex: Female

DRUGS (4)
  1. REVLIMID [Suspect]
     Indication: MULTIPLE MYELOMA
     Dosage: 10 MILLIGRAM
     Route: 048
     Dates: start: 20110627, end: 20110719
  2. ASCAL CARDIO [Concomitant]
     Dosage: 100 MILLIGRAM
     Route: 065
     Dates: start: 20110701
  3. ACETAMINOPHEN [Concomitant]
     Dosage: 3000 MILLIGRAM
     Route: 065
  4. NEXIUM [Concomitant]
     Dosage: 20 MILLIGRAM
     Route: 065

REACTIONS (1)
  - HAEMOLYTIC ANAEMIA [None]
